FAERS Safety Report 4326476-6 (Version None)
Quarter: 2004Q1

REPORT INFORMATION
  Report Type: 
  Country: None (occurrence: None)
  Receive Date: 20040329
  Receipt Date: 20040329
  Transmission Date: 20041129
  Serious: Yes (Other)
  Sender: FDA-Public Use
  Company Number: None

PATIENT
  Age: 33 Year
  Sex: Female
  Weight: 63.5036 kg

DRUGS (2)
  1. PAXIL [Suspect]
     Indication: PREMENSTRUAL SYNDROME
     Dosage: 25 MG ONCE A DAY ORAL
     Route: 048
     Dates: start: 20030907, end: 20040309
  2. PAXIL [Suspect]
     Dosage: 12.5 MG ONCE A DAY ORAL
     Route: 048
     Dates: start: 20030309, end: 20040315

REACTIONS (10)
  - AGGRESSION [None]
  - AMNESIA [None]
  - CONFUSIONAL STATE [None]
  - COORDINATION ABNORMAL [None]
  - CRYING [None]
  - DISTURBANCE IN ATTENTION [None]
  - DIZZINESS [None]
  - HEADACHE [None]
  - NECK PAIN [None]
  - WEIGHT INCREASED [None]
